FAERS Safety Report 4763798-9 (Version None)
Quarter: 2005Q3

REPORT INFORMATION
  Report Type: 
  Country: None (occurrence: None)
  Receive Date: 20050901
  Receipt Date: 20050727
  Transmission Date: 20060218
  Serious: Yes (Congenital Anomaly)
  Sender: FDA-Public Use
  Company Number: 05P-163-0306912-00

PATIENT
  Sex: 0

DRUGS (3)
  1. DEPAKOTE ER [Suspect]
     Indication: DRUG EXPOSURE DURING PREGNANCY
  2. MYSOLINE [Suspect]
     Indication: DRUG EXPOSURE DURING PREGNANCY
  3. LAMOTRIGINE [Suspect]
     Indication: DRUG EXPOSURE DURING PREGNANCY
     Dosage: UNK;   300 MG, PER ORAL
     Route: 048
     Dates: start: 20050501

REACTIONS (2)
  - BRADYCARDIA FOETAL [None]
  - SPINA BIFIDA [None]
